FAERS Safety Report 5387692-8 (Version None)
Quarter: 2007Q3

REPORT INFORMATION
  Report Type: 
  Country: None (occurrence: None)
  Receive Date: 20070716
  Receipt Date: 20070704
  Transmission Date: 20080115
  Serious: Yes (Other)
  Sender: FDA-Public Use
  Company Number: ES-JNJFOC-20070701176

PATIENT
  Age: 36 Year
  Sex: Male
  Weight: 81 kg

DRUGS (9)
  1. DURAGESIC-100 [Suspect]
     Indication: SPONDYLOARTHROPATHY
     Route: 062
  2. DACORTIN [Suspect]
     Indication: COLITIS ULCERATIVE
     Route: 048
  3. RABEPRAZOLE SODIUM [Interacting]
     Indication: PEPTIC ULCER
     Route: 048
  4. ATACAND [Concomitant]
     Indication: HYPERTENSION
     Route: 048
  5. TRAVATAN [Concomitant]
     Indication: GLAUCOMA
  6. TIMOFTOL [Concomitant]
     Indication: GLAUCOMA
  7. CLAVERSAL [Concomitant]
     Indication: COLITIS
     Route: 048
  8. ACTONEL [Concomitant]
     Indication: OSTEOPOROSIS
     Route: 048
  9. NATECAL [Concomitant]
     Indication: OSTEOPOROSIS
     Route: 048

REACTIONS (2)
  - DRUG INTERACTION [None]
  - GYNAECOMASTIA [None]
